FAERS Safety Report 18277496 (Version 1)
Quarter: 2020Q3

REPORT INFORMATION
  Report Type: Spontaneous
  Country: FR (occurrence: FR)
  Receive Date: 20200917
  Receipt Date: 20200917
  Transmission Date: 20201103
  Serious: Yes (Hospitalization)
  Sender: FDA-Public Use
  Company Number: FR-TEVA-2020-FR-1827627

PATIENT
  Age: 59 Year
  Sex: Female

DRUGS (2)
  1. LAMALINE (ACETAMINOPHEN\CAFFEINE\OPIUM) [Suspect]
     Active Substance: ACETAMINOPHEN\CAFFEINE\OPIUM
     Indication: BACK PAIN
     Route: 048
     Dates: start: 20200814
  2. NAPROXENE [Suspect]
     Active Substance: NAPROXEN
     Indication: BACK PAIN
     Dosage: 2 DOSAGE FORMS
     Route: 048
     Dates: start: 20200814

REACTIONS (3)
  - Hepatocellular injury [Recovering/Resolving]
  - Rash maculo-papular [Not Recovered/Not Resolved]
  - Pyrexia [Not Recovered/Not Resolved]

NARRATIVE: CASE EVENT DATE: 20200815
